FAERS Safety Report 7315642-3 (Version None)
Quarter: 2011Q1

REPORT INFORMATION
  Report Type: 
  Country: None (occurrence: None)
  Receive Date: 20110225
  Receipt Date: 20110214
  Transmission Date: 20110831
  Serious: Yes (Other)
  Sender: FDA-Public Use
  Company Number: PHHY2011US12123

PATIENT
  Age: 69 Year
  Sex: Female

DRUGS (5)
  1. HYDRALAZINE [Concomitant]
     Dosage: 25 MG, BID
  2. ESOMEPRAZOLE [Concomitant]
     Dosage: 10 MG, QD
  3. INSULIN [Concomitant]
     Route: 041
  4. FERROUS SULFATE TAB [Concomitant]
     Dosage: UNK
  5. VERAPAMIL [Suspect]
     Dosage: 120 MG, QD

REACTIONS (11)
  - SYNCOPE [None]
  - CONFUSIONAL STATE [None]
  - HYPOTENSION [None]
  - ECG P WAVE INVERTED [None]
  - ASTHENIA [None]
  - CONDUCTION DISORDER [None]
  - TOXICITY TO VARIOUS AGENTS [None]
  - DRUG LEVEL ABOVE THERAPEUTIC [None]
  - BRADYCARDIA [None]
  - BLOOD CREATININE INCREASED [None]
  - ATRIOVENTRICULAR BLOCK COMPLETE [None]
